FAERS Safety Report 17587236 (Version 2)
Quarter: 2022Q4

REPORT INFORMATION
  Report Type: Report from Study
  Country: US (occurrence: US)
  Receive Date: 20200326
  Receipt Date: 20221124
  Transmission Date: 20230113
  Serious: Yes (Other)
  Sender: FDA-Public Use
  Company Number: US-JAZZ-2017-US-011479

PATIENT
  Sex: Female

DRUGS (42)
  1. XYREM [Suspect]
     Active Substance: SODIUM OXYBATE
     Indication: Narcolepsy
     Dosage: 2.25 G, BID
     Route: 048
     Dates: start: 201606, end: 201608
  2. XYREM [Suspect]
     Active Substance: SODIUM OXYBATE
     Indication: Cataplexy
     Dosage: 3 G, BID
     Route: 048
     Dates: start: 201608
  3. XYREM [Suspect]
     Active Substance: SODIUM OXYBATE
     Dosage: 3.75 GRAM, BID
  4. TOPROL XL [Concomitant]
     Active Substance: METOPROLOL SUCCINATE
  5. DYPHYLLINE [Concomitant]
     Active Substance: DYPHYLLINE
  6. CHANTIX [Concomitant]
     Active Substance: VARENICLINE TARTRATE
  7. ALLEGRA [Concomitant]
     Active Substance: FEXOFENADINE HYDROCHLORIDE
  8. ALPRAZOLAM [Concomitant]
     Active Substance: ALPRAZOLAM
  9. OMEPRAZOLE [Concomitant]
     Active Substance: OMEPRAZOLE
  10. SINGULAIR [Concomitant]
     Active Substance: MONTELUKAST SODIUM
  11. WELCHOL [Concomitant]
     Active Substance: COLESEVELAM HYDROCHLORIDE
  12. LO LOESTRIN FE [Concomitant]
     Active Substance: ETHINYL ESTRADIOL\NORETHINDRONE ACETATE
  13. SPIRONOLACTONE [Concomitant]
     Active Substance: SPIRONOLACTONE
  14. MOMETASONE FUROATE [Concomitant]
     Active Substance: MOMETASONE FUROATE
  15. QVAR [Concomitant]
     Active Substance: BECLOMETHASONE DIPROPIONATE
  16. CELEXA [Concomitant]
     Active Substance: CITALOPRAM HYDROBROMIDE
  17. CIPRODEX [Concomitant]
     Active Substance: CIPROFLOXACIN HYDROCHLORIDE\DEXAMETHASONE
  18. AMBIEN [Concomitant]
     Active Substance: ZOLPIDEM TARTRATE
  19. PROAIR HFA [Concomitant]
     Active Substance: ALBUTEROL SULFATE
  20. VITAMIN C [Concomitant]
     Active Substance: ASCORBIC ACID
  21. CYTOMEL [Concomitant]
     Active Substance: LIOTHYRONINE SODIUM
  22. LOVAZA [Concomitant]
     Active Substance: OMEGA-3-ACID ETHYL ESTERS
  23. PROVIGIL [Concomitant]
     Active Substance: MODAFINIL
  24. CYANOCOBALAMIN [Concomitant]
     Active Substance: CYANOCOBALAMIN
  25. DDAVP [Concomitant]
     Active Substance: DESMOPRESSIN ACETATE
  26. FIORICET [Concomitant]
     Active Substance: ACETAMINOPHEN\BUTALBITAL\CAFFEINE
  27. TOPAMAX [Concomitant]
     Active Substance: TOPIRAMATE
  28. CORTEF [Concomitant]
     Active Substance: HYDROCORTISONE
  29. SYNTHROID [Concomitant]
     Active Substance: LEVOTHYROXINE SODIUM
  30. VITAMIN D3 [Concomitant]
     Active Substance: CHOLECALCIFEROL
  31. INDERAL [Concomitant]
     Active Substance: PROPRANOLOL HYDROCHLORIDE
  32. LYRICA [Concomitant]
     Active Substance: PREGABALIN
  33. ARAVA [Concomitant]
     Active Substance: LEFLUNOMIDE
  34. LEUCOVORIN CALCIUM [Concomitant]
     Active Substance: LEUCOVORIN CALCIUM
  35. METHOTREXATE [Concomitant]
     Active Substance: METHOTREXATE
  36. MOBIC [Concomitant]
     Active Substance: MELOXICAM
  37. ZANAFLEX [Concomitant]
     Active Substance: TIZANIDINE HYDROCHLORIDE
  38. ERYTHROMYCIN [Concomitant]
     Active Substance: ERYTHROMYCIN
  39. RELPAX [Concomitant]
     Active Substance: ELETRIPTAN HYDROBROMIDE
  40. VALTREX [Concomitant]
     Active Substance: VALACYCLOVIR HYDROCHLORIDE
     Dosage: UNK
     Dates: start: 20190729
  41. PENTOXIFYLLINE [Concomitant]
     Active Substance: PENTOXIFYLLINE
     Dosage: UNK
     Dates: start: 20190213
  42. CIMZIA [Concomitant]
     Active Substance: CERTOLIZUMAB PEGOL
     Dosage: UNK
     Dates: start: 20140101

REACTIONS (4)
  - Obesity [Recovering/Resolving]
  - Hepatic steatosis [Recovered/Resolved]
  - Back pain [Unknown]
  - Pre-existing condition improved [Unknown]
